FAERS Safety Report 4301716-8 (Version None)
Quarter: 2004Q1

REPORT INFORMATION
  Report Type: 
  Country: None (occurrence: None)
  Receive Date: 20040219
  Receipt Date: 20040205
  Transmission Date: 20041129
  Serious: Yes (Hospitalization)
  Sender: FDA-Public Use
  Company Number: 2004-00456

PATIENT
  Age: 76 Year
  Sex: Male

DRUGS (1)
  1. IMMUCYST (BCG - IT (CONNAUGHT) ), AVENTIS PASTEUR LTD. [Suspect]
     Indication: BENIGN NEOPLASM OF BLADDER
     Dosage: 2 INSTILLATIONS OF 80 MG (80.0 MG) B.IN., BLADDER
     Dates: start: 20030101

REACTIONS (3)
  - BACTERIURIA [None]
  - GRANULOMA [None]
  - PROSTATITIS [None]
